FAERS Safety Report 14676531 (Version 2)
Quarter: 2018Q1

REPORT INFORMATION
  Report Type: Spontaneous
  Country: JP (occurrence: JP)
  Receive Date: 20180324
  Receipt Date: 20180326
  Transmission Date: 20180509
  Serious: Yes (Hospitalization)
  Sender: FDA-Public Use
  Company Number: JP-ROCHE-2094222

PATIENT
  Age: 6 Decade
  Sex: Male

DRUGS (2)
  1. CELLCEPT [Suspect]
     Active Substance: MYCOPHENOLATE MOFETIL\MYCOPHENOLATE MOFETIL HYDROCHLORIDE
     Indication: SYSTEMIC LUPUS ERYTHEMATOSUS
     Dosage: DOSE INTERVAL UNCERTAINTY
     Route: 048
  2. PREDNISOLONE. [Concomitant]
     Active Substance: PREDNISOLONE
     Dosage: DOSE INTERVAL UNCERTAINTY
     Route: 065

REACTIONS (8)
  - Headache [Recovering/Resolving]
  - Off label use [Unknown]
  - Blood creatine phosphokinase increased [Unknown]
  - Pneumonia [Unknown]
  - Vomiting [Recovering/Resolving]
  - Eating disorder [Unknown]
  - Nausea [Recovering/Resolving]
  - Pyrexia [Unknown]
